FAERS Safety Report 14871315 (Version 2)
Quarter: 2018Q4

REPORT INFORMATION
  Report Type: Report from Study
  Country: US (occurrence: US)
  Receive Date: 20180509
  Receipt Date: 20181206
  Transmission Date: 20190204
  Serious: Yes (Death, Hospitalization)
  Sender: FDA-Public Use
  Company Number: US-ASTRAZENECA-2018SE56191

PATIENT
  Age: 62 Year
  Sex: Female
  Weight: 51 kg

DRUGS (12)
  1. INCB039110 [Suspect]
     Active Substance: ITACITINIB
     Indication: NON-SMALL CELL LUNG CANCER
     Route: 048
     Dates: start: 20180308, end: 20180418
  2. METOPROLOL. [Concomitant]
     Active Substance: METOPROLOL
     Route: 065
     Dates: start: 20180404
  3. FLONASE [Concomitant]
     Active Substance: FLUTICASONE PROPIONATE
     Dosage: 50 MCG
     Route: 045
  4. CLARITINE [Concomitant]
     Active Substance: LORATADINE
     Dosage: 10 MG
     Route: 065
  5. OXYCODONE [Concomitant]
     Active Substance: OXYCODONE
  6. APIXABAN [Concomitant]
     Active Substance: APIXABAN
     Route: 065
     Dates: start: 2016
  7. DILTIAZEM. [Concomitant]
     Active Substance: DILTIAZEM
     Route: 065
     Dates: start: 201606
  8. CENTRUM [Concomitant]
     Active Substance: VITAMINS
     Route: 065
  9. WAL PROFEN COLD AND SINUS [Concomitant]
     Active Substance: IBUPROFEN\PSEUDOEPHEDRINE HYDROCHLORIDE
     Route: 065
  10. ACETAMINOPHEN. [Concomitant]
     Active Substance: ACETAMINOPHEN
     Dosage: 325 MG
     Route: 065
  11. TAGRISSO [Suspect]
     Active Substance: OSIMERTINIB
     Indication: NON-SMALL CELL LUNG CANCER
     Route: 048
     Dates: start: 20180308, end: 20180418
  12. VITAMIN D [Concomitant]
     Active Substance: CHOLECALCIFEROL
     Route: 065

REACTIONS (3)
  - Pneumonia [Fatal]
  - Pulmonary alveolar haemorrhage [Fatal]
  - Cardiac failure [Fatal]

NARRATIVE: CASE EVENT DATE: 20180417
